FAERS Safety Report 11196885 (Version 1)
Quarter: 2015Q2

REPORT INFORMATION
  Report Type: Spontaneous
  Country: GB (occurrence: GB)
  Receive Date: 20150617
  Receipt Date: 20150617
  Transmission Date: 20150821
  Serious: Yes (Disabling, Other)
  Sender: FDA-Public Use
  Company Number: GB-UCBSA-2015015643

PATIENT
  Age: 65 Year
  Sex: Male

DRUGS (26)
  1. ROTIGOTINE [Suspect]
     Active Substance: ROTIGOTINE
     Indication: PARKINSON^S DISEASE
     Dosage: UNK
     Route: 062
     Dates: start: 2012
  2. STALEVO [Concomitant]
     Active Substance: CARBIDOPA\ENTACAPONE\LEVODOPA
     Dosage: 75/18.75/200 MG X6 DOSES (2.5 HRLY) (AT 8.30 AM, 11 AM, 1.30 PM, 4 PM, 6..30 PM AND 9 PM )
     Dates: start: 2013
  3. TAMSULOSIN [Concomitant]
     Active Substance: TAMSULOSIN
     Indication: POLLAKIURIA
     Dosage: 400 ?G, ONCE DAILY (QD)
  4. STALEVO [Concomitant]
     Active Substance: CARBIDOPA\ENTACAPONE\LEVODOPA
     Indication: PRODUCT USED FOR UNKNOWN INDICATION
     Dosage: FIVE TIMES A DAY
     Dates: start: 2008
  5. LEVODOPA [Concomitant]
     Active Substance: LEVODOPA
     Indication: PRODUCT USED FOR UNKNOWN INDICATION
     Dosage: UNK
  6. LEVOTHYROXINE [Concomitant]
     Active Substance: LEVOTHYROXINE
     Indication: PRODUCT USED FOR UNKNOWN INDICATION
     Dosage: UNK
     Dates: start: 2008
  7. LEVOTHYROXINE [Concomitant]
     Active Substance: LEVOTHYROXINE
     Dosage: 50 ?G, ONCE DAILY (QD)
  8. FUROSEMIDE. [Concomitant]
     Active Substance: FUROSEMIDE
     Indication: PRODUCT USED FOR UNKNOWN INDICATION
     Dosage: 40 MG, ONCE DAILY (QD)
  9. RAMIPRIL. [Concomitant]
     Active Substance: RAMIPRIL
     Indication: PRODUCT USED FOR UNKNOWN INDICATION
     Dosage: 10 MG, ONCE DAILY (QD)
  10. ROTIGOTINE [Suspect]
     Active Substance: ROTIGOTINE
     Dosage: 10 MG, ONCE DAILY (QD)
     Route: 062
     Dates: start: 2013
  11. ALVERINE CITRATE [Concomitant]
     Active Substance: ALVERINE CITRATE
     Indication: PRODUCT USED FOR UNKNOWN INDICATION
     Dosage: 60 MG, 2X/DAY (BID)
  12. DUTASTERIDE. [Concomitant]
     Active Substance: DUTASTERIDE
     Indication: MICTURITION URGENCY
     Dosage: UNK
     Dates: start: 2011
  13. TRAMADOL [Concomitant]
     Active Substance: TRAMADOL
     Indication: PRODUCT USED FOR UNKNOWN INDICATION
     Dosage: UNK
     Dates: start: 2008
  14. RANITIDINE [Concomitant]
     Active Substance: RANITIDINE\RANITIDINE HYDROCHLORIDE
     Indication: PRODUCT USED FOR UNKNOWN INDICATION
     Dosage: 150 MG, 2X/DAY (BID)
  15. MADOPAR [Concomitant]
     Active Substance: BENSERAZIDE HYDROCHLORIDE\LEVODOPA
     Indication: PRODUCT USED FOR UNKNOWN INDICATION
     Dosage: 50/12.5 MG AT 6 AM
  16. RASAGILINE [Concomitant]
     Active Substance: RASAGILINE
     Indication: PRODUCT USED FOR UNKNOWN INDICATION
     Dosage: 1 MG, ONCE DAILY (QD)
     Dates: start: 2011
  17. TRAMADOL [Concomitant]
     Active Substance: TRAMADOL
     Indication: PRODUCT USED FOR UNKNOWN INDICATION
     Dosage: UNK
     Dates: start: 2008
  18. LACTULOSE. [Concomitant]
     Active Substance: LACTULOSE
     Indication: PRODUCT USED FOR UNKNOWN INDICATION
     Dosage: 15 ML, 2X/DAY (BID)
  19. MOMETASONE [Concomitant]
     Active Substance: MOMETASONE
     Indication: PRODUCT USED FOR UNKNOWN INDICATION
     Dosage: UNK
  20. TRAMADOL [Concomitant]
     Active Substance: TRAMADOL
     Dosage: 50 MG, AS NEEDED (PRN) (MAX ONCE DAILY)
  21. TRAMADOL [Concomitant]
     Active Substance: TRAMADOL
     Dosage: 100 MG, 2X/DAY (BID)
  22. ROTIGOTINE [Suspect]
     Active Substance: ROTIGOTINE
     Dosage: 8 MG, ONCE DAILY (QD)
     Route: 062
     Dates: start: 2013, end: 2013
  23. STALEVO [Concomitant]
     Active Substance: CARBIDOPA\ENTACAPONE\LEVODOPA
     Dosage: 100/25/200MG, ONCE DAILY (QD) AT 6 AM
     Dates: start: 2012, end: 2013
  24. MADOPAR [Concomitant]
     Active Substance: BENSERAZIDE HYDROCHLORIDE\LEVODOPA
     Dosage: 50/12.5 MG, AS NEEDED (PRN) X1 PER DAY
     Dates: start: 2013
  25. DUTASTERIDE. [Concomitant]
     Active Substance: DUTASTERIDE
     Indication: POLLAKIURIA
     Dosage: 500 ?G, ONCE DAILY (QD)
  26. TAMSULOSIN [Concomitant]
     Active Substance: TAMSULOSIN
     Indication: MICTURITION URGENCY
     Dosage: UNK
     Dates: start: 2011

REACTIONS (5)
  - Application site reaction [Not Recovered/Not Resolved]
  - Drug ineffective [Unknown]
  - Paraesthesia [Not Recovered/Not Resolved]
  - Neuralgia [Not Recovered/Not Resolved]
  - Muscle spasms [Not Recovered/Not Resolved]

NARRATIVE: CASE EVENT DATE: 20130615
